FAERS Safety Report 9959911 (Version 1)
Quarter: 2014Q1

REPORT INFORMATION
  Report Type: Report from Study
  Country: US (occurrence: US)
  Receive Date: 20140305
  Receipt Date: 20140305
  Transmission Date: 20141002
  Serious: No
  Sender: FDA-Public Use
  Company Number: US-ABBVIE-13P-163-1106437-00

PATIENT
  Age: 40 Year
  Sex: Female

DRUGS (15)
  1. HUMIRA [Suspect]
     Indication: PSORIASIS
  2. OXYCODONE [Concomitant]
     Indication: PAIN IN EXTREMITY
     Dosage: AS REQUIRED
  3. OXYCODONE [Concomitant]
     Indication: PAIN IN EXTREMITY
  4. OXYCODONE [Concomitant]
     Indication: EXOSTOSIS
  5. OXYCODONE [Concomitant]
     Indication: PAIN
  6. ACETAMINOPHEN [Concomitant]
     Indication: PAIN IN EXTREMITY
     Dosage: AS REQUIRED
  7. ACETAMINOPHEN [Concomitant]
     Indication: PAIN IN EXTREMITY
  8. ACETAMINOPHEN [Concomitant]
     Indication: EXOSTOSIS
  9. ACETAMINOPHEN [Concomitant]
     Indication: PAIN
  10. SOMA [Concomitant]
     Indication: EXOSTOSIS
     Dosage: AS REQUIRED
  11. SOMA [Concomitant]
     Indication: PAIN IN EXTREMITY
  12. SOMA [Concomitant]
     Indication: PAIN IN EXTREMITY
  13. SOMA [Concomitant]
     Indication: PAIN
  14. XANAX [Concomitant]
     Indication: INSOMNIA
  15. XANAX [Concomitant]
     Indication: ANXIETY

REACTIONS (6)
  - Injection site bruising [Not Recovered/Not Resolved]
  - Injection site swelling [Not Recovered/Not Resolved]
  - Injection site pruritus [Not Recovered/Not Resolved]
  - Headache [Recovered/Resolved]
  - Sinusitis [Unknown]
  - Tuberculin test positive [Unknown]
